FAERS Safety Report 12586285 (Version 1)
Quarter: 2016Q3

REPORT INFORMATION
  Report Type: Spontaneous
  Country: US (occurrence: None)
  Receive Date: 20160722
  Receipt Date: 20160722
  Transmission Date: 20161109
  Serious: Yes (Other)
  Sender: FDA-Public Use
  Company Number: None

PATIENT
  Age: 29 Year
  Sex: Male
  Weight: 83.92 kg

DRUGS (5)
  1. BUPROPION XL [Suspect]
     Active Substance: BUPROPION
     Indication: DEPRESSION
     Route: 048
  2. PSYLLIUM KONSYL [Suspect]
     Active Substance: PSYLLIUM HUSK
     Indication: CONSTIPATION
  3. PSYLLIUM KONSYL [Suspect]
     Active Substance: PSYLLIUM HUSK
     Indication: DECREASED APPETITE
  4. TRUVADA [Concomitant]
     Active Substance: EMTRICITABINE\TENOFOVIR DISOPROXIL FUMARATE
  5. DOXYCYCLINE. [Concomitant]
     Active Substance: DOXYCYCLINE

REACTIONS (3)
  - Medication residue present [None]
  - Inhibitory drug interaction [None]
  - Underdose [None]

NARRATIVE: CASE EVENT DATE: 20160721
